FAERS Safety Report 6098667-8 (Version None)
Quarter: 2009Q1

REPORT INFORMATION
  Report Type: 
  Country: None (occurrence: None)
  Receive Date: 20090302
  Receipt Date: 20090130
  Transmission Date: 20090719
  Serious: Yes (Death)
  Sender: FDA-Public Use
  Company Number: US-TYCO HEALTHCARE/MALLINCKRODT-T200900349

PATIENT
  Age: 42 Year
  Sex: Female

DRUGS (5)
  1. IMIPRAMINE PAMOATE [Suspect]
  2. OXYCODONE [Suspect]
     Route: 048
  3. CYCLOBENZAPRINE [Suspect]
     Route: 048
  4. PROMETHAZINE [Suspect]
     Route: 048
  5. UNKNOWN DRUG [Suspect]

REACTIONS (1)
  - CARDIO-RESPIRATORY ARREST [None]
